FAERS Safety Report 6772640-6 (Version None)
Quarter: 2010Q2

REPORT INFORMATION
  Report Type: 
  Country: None (occurrence: None)
  Receive Date: 20100616
  Receipt Date: 20100218
  Transmission Date: 20101027
  Serious: No
  Sender: FDA-Public Use
  Company Number: US-ASTRAZENECA-2010SE07196

PATIENT
  Age: 5 Year
  Sex: Female

DRUGS (1)
  1. PULMICORT RESPULES [Suspect]
     Indication: ASTHMA
     Route: 055
     Dates: start: 20070101

REACTIONS (3)
  - EAR INFECTION [None]
  - LIMB INJURY [None]
  - NASOPHARYNGITIS [None]
